FAERS Safety Report 10750144 (Version 4)
Quarter: 2015Q4

REPORT INFORMATION
  Report Type: Report from Study
  Country: TW (occurrence: TW)
  Receive Date: 20150129
  Receipt Date: 20151221
  Transmission Date: 20160304
  Serious: No
  Sender: FDA-Public Use
  Company Number: PHHY2014TW105540

PATIENT
  Age: 55 Year
  Sex: Male

DRUGS (27)
  1. DICLOFENAC [Concomitant]
     Active Substance: DICLOFENAC
     Dosage: 1 DF, UNK
     Route: 048
     Dates: start: 20140726, end: 20140729
  2. NAPROXEN. [Concomitant]
     Active Substance: NAPROXEN
     Indication: PRODUCT USED FOR UNKNOWN INDICATION
     Dosage: 250 MG, UNK
     Route: 048
     Dates: start: 20140730, end: 20140802
  3. TASIGNA [Suspect]
     Active Substance: NILOTINIB
     Indication: CHRONIC MYELOID LEUKAEMIA
     Dosage: 600 OT, UNK
     Route: 048
     Dates: start: 20140404
  4. ACETAMINOPHEN. [Concomitant]
     Active Substance: ACETAMINOPHEN
     Dosage: 1 DF, UNK
     Route: 048
     Dates: start: 20140730, end: 20140802
  5. PIPRINHYDRINATE [Concomitant]
     Indication: PRODUCT USED FOR UNKNOWN INDICATION
     Dosage: 1 DF, UNK
     Route: 048
     Dates: start: 20140704, end: 20140707
  6. ANCOGEN [Concomitant]
     Indication: OROPHARYNGEAL PAIN
     Dosage: 1 DF, UNK
     Route: 048
     Dates: start: 20140828, end: 20141204
  7. CIMETIDINE [Concomitant]
     Active Substance: CIMETIDINE
     Dosage: 1 DF, UNK
     Route: 048
     Dates: start: 20140802
  8. CETYLPYRIDINIUM [Concomitant]
     Active Substance: CETYLPYRIDINIUM
     Indication: PRODUCT USED FOR UNKNOWN INDICATION
     Dosage: 1 DF, UNK
     Route: 048
     Dates: start: 20140704, end: 20140707
  9. MEQUITAZINE [Concomitant]
     Active Substance: MEQUITAZINE
     Indication: PRODUCT USED FOR UNKNOWN INDICATION
     Dosage: 1 DF, UNK
     Route: 048
     Dates: start: 20140726, end: 20140729
  10. CIMETIDINE [Concomitant]
     Active Substance: CIMETIDINE
     Indication: REGURGITATION
     Dosage: 1 DF, UNK
     Route: 048
     Dates: start: 20140610, end: 20140613
  11. DICLOFENAC [Concomitant]
     Active Substance: DICLOFENAC
     Indication: PRODUCT USED FOR UNKNOWN INDICATION
     Dosage: 1 DF, UNK
     Route: 048
     Dates: start: 20140802, end: 20140805
  12. CEPHALEXIN. [Concomitant]
     Active Substance: CEPHALEXIN
     Indication: PRODUCT USED FOR UNKNOWN INDICATION
     Dosage: 250 MG, UNK
     Route: 048
     Dates: start: 20140816, end: 20140820
  13. ACETAMINOPHEN. [Concomitant]
     Active Substance: ACETAMINOPHEN
     Indication: PRODUCT USED FOR UNKNOWN INDICATION
     Dosage: 500 MG, UNK
     Route: 048
     Dates: start: 20140704, end: 20140707
  14. ACETAMINOPHEN. [Concomitant]
     Active Substance: ACETAMINOPHEN
     Dosage: 500 MG, UNK
     Route: 048
     Dates: start: 20150115, end: 20150122
  15. ACETAMINOPHEN. [Concomitant]
     Active Substance: ACETAMINOPHEN
     Dosage: 500 MG, UNK
     Route: 048
     Dates: start: 20150212, end: 20150219
  16. ACETAMINOPHEN. [Concomitant]
     Active Substance: ACETAMINOPHEN
     Dosage: 500 MG, UNK
     Route: 048
     Dates: start: 20150312, end: 20150319
  17. FLURBIPROFEN. [Concomitant]
     Active Substance: FLURBIPROFEN
     Indication: UPPER RESPIRATORY TRACT INFECTION
     Dosage: 1 DF, UNK
     Route: 048
     Dates: start: 20140610, end: 20140613
  18. ACEMETACIN [Concomitant]
     Active Substance: ACEMETACIN
     Indication: PRODUCT USED FOR UNKNOWN INDICATION
     Dosage: 60 MG, UNK
     Route: 048
     Dates: start: 20140820, end: 20140823
  19. RANITIDINE [Concomitant]
     Active Substance: RANITIDINE\RANITIDINE HYDROCHLORIDE
     Indication: REGURGITATION
     Dosage: 150 MG, UNK
     Route: 048
     Dates: start: 20140425, end: 20141204
  20. ACETAMINOPHEN. [Concomitant]
     Active Substance: ACETAMINOPHEN
     Dosage: 500 MG, UNK
     Route: 048
     Dates: start: 20140811, end: 20140820
  21. DYPHYLLINE [Concomitant]
     Active Substance: DYPHYLLINE
     Indication: PRODUCT USED FOR UNKNOWN INDICATION
     Dosage: 1 DF, UNK
     Route: 048
     Dates: start: 20140704, end: 20140707
  22. EPRAZINONE [Concomitant]
     Active Substance: EPRAZINONE
     Indication: PRODUCT USED FOR UNKNOWN INDICATION
     Dosage: 1 DF, UNK
     Route: 048
     Dates: start: 20140726, end: 20140729
  23. CLINDAMYCIN [Concomitant]
     Active Substance: CLINDAMYCIN\CLINDAMYCIN PHOSPHATE
     Indication: PRODUCT USED FOR UNKNOWN INDICATION
     Dosage: 1 DF, UNK
     Route: 048
     Dates: start: 20140726, end: 20140802
  24. ERYTHROMYCIN. [Concomitant]
     Active Substance: ERYTHROMYCIN
     Indication: PRODUCT USED FOR UNKNOWN INDICATION
     Dosage: 250 MG, UNK
     Route: 048
     Dates: start: 20140811, end: 20140816
  25. DIAZEPAM. [Concomitant]
     Active Substance: DIAZEPAM
     Indication: INSOMNIA
     Dosage: 0.5 DF, UNK
     Route: 048
     Dates: start: 20140805
  26. MEFENAMIC [Concomitant]
     Active Substance: MEFENAMIC ACID
     Indication: UPPER RESPIRATORY TRACT INFECTION
     Dosage: 1 DF, UNK
     Route: 048
     Dates: start: 20140802
  27. PROPRANOLOL HCL [Concomitant]
     Active Substance: PROPRANOLOL HYDROCHLORIDE
     Indication: PRODUCT USED FOR UNKNOWN INDICATION
     Dosage: 10 MG, UNK
     Route: 048
     Dates: start: 20140820, end: 20140823

REACTIONS (3)
  - Upper respiratory tract infection [Recovered/Resolved]
  - Upper respiratory tract infection [Not Recovered/Not Resolved]
  - Upper respiratory tract infection [Recovered/Resolved]

NARRATIVE: CASE EVENT DATE: 20140610
